FAERS Safety Report 21360209 (Version 1)
Quarter: 2022Q3

REPORT INFORMATION
  Report Type: Spontaneous
  Country: DE (occurrence: DE)
  Receive Date: 20220921
  Receipt Date: 20220921
  Transmission Date: 20221026
  Serious: Yes (Hospitalization, Other)
  Sender: FDA-Public Use
  Company Number: DE-ENDO PHARMACEUTICALS INC-2022-005617

PATIENT
  Age: 55 Year
  Sex: Male

DRUGS (1)
  1. TESTIM [Suspect]
     Active Substance: TESTOSTERONE
     Indication: Product used for unknown indication
     Dosage: UNK UNKNOWN, UNKNOWN
     Route: 062

REACTIONS (6)
  - Cold sweat [Unknown]
  - Chest discomfort [Unknown]
  - Palpitations [Unknown]
  - Angina pectoris [Unknown]
  - Malaise [Unknown]
  - Myocardial infarction [Unknown]
